FAERS Safety Report 4629346-9 (Version None)
Quarter: 2005Q2

REPORT INFORMATION
  Report Type: 
  Country: None (occurrence: None)
  Receive Date: 20050404
  Receipt Date: 20050314
  Transmission Date: 20051028
  Serious: Yes (Other)
  Sender: FDA-Public Use
  Company Number: B0374564A

PATIENT
  Age: 66 Year
  Sex: Male

DRUGS (9)
  1. ADVAIR UNSPECIFIED INHALER DEVICE (FLUTICASONE+SALMETEROL) [Suspect]
     Indication: ASTHMA
  2. RITONAVIR (RITONAVIR) [Suspect]
     Indication: HIV INFECTION
     Dosage: 100 MG / TWICE PER DAY
  3. DIDANOSINE [Concomitant]
  4. STAVUDINE [Concomitant]
  5. AMPRENAVIR [Concomitant]
  6. BUDESONIDE [Concomitant]
  7. FORMOTEROL [Concomitant]
  8. CORTISONE ACETATE [Concomitant]
  9. ABACAVIR SULPHATE [Concomitant]

REACTIONS (15)
  - ADRENAL DISORDER [None]
  - ASEPTIC NECROSIS BONE [None]
  - CUSHINGOID [None]
  - DRUG EFFECT INCREASED [None]
  - DRUG INTERACTION [None]
  - FEMUR FRACTURE [None]
  - LIPOHYPERTROPHY [None]
  - MUSCLE ATROPHY [None]
  - MUSCULAR WEAKNESS [None]
  - MYOPATHY [None]
  - OBESITY [None]
  - ORAL CANDIDIASIS [None]
  - PAIN IN EXTREMITY [None]
  - SKIN ATROPHY [None]
  - WEIGHT INCREASED [None]
